FAERS Safety Report 20679361 (Version 1)
Quarter: 2022Q2

REPORT INFORMATION
  Report Type: Spontaneous
  Country: US (occurrence: None)
  Receive Date: 20220405
  Receipt Date: 20220405
  Transmission Date: 20220721
  Serious: Yes (Other)
  Sender: FDA-Public Use
  Company Number: None

PATIENT
  Age: 65 Year
  Sex: Female
  Weight: 65.25 kg

DRUGS (1)
  1. ANASTROZOLE [Suspect]
     Active Substance: ANASTROZOLE
     Indication: Invasive breast carcinoma
     Dosage: OTHER QUANTITY : 1 TABLET(S);?FREQUENCY : DAILY;?
     Route: 048

REACTIONS (8)
  - Arthralgia [None]
  - Peripheral swelling [None]
  - Pain in extremity [None]
  - Middle insomnia [None]
  - Trigger finger [None]
  - Therapy cessation [None]
  - Decreased activity [None]
  - Pain [None]

NARRATIVE: CASE EVENT DATE: 20220320
